FAERS Safety Report 7182970-4 (Version None)
Quarter: 2010Q4

REPORT INFORMATION
  Report Type: 
  Country: None (occurrence: None)
  Receive Date: 20101209
  Receipt Date: 20101123
  Transmission Date: 20110411
  Serious: Yes (Hospitalization)
  Sender: FDA-Public Use
  Company Number: 2010AP002513

PATIENT
  Age: 75 Year
  Sex: Male

DRUGS (6)
  1. AMLODIPINE BESYLATE [Suspect]
     Indication: HYPERTENSION
     Dosage: 5 MG;QD;PO
     Route: 048
     Dates: start: 20021015
  2. HYZAAR [Suspect]
     Indication: HYPERTENSION
     Dosage: 62.5 MG;PO;QD
     Route: 048
     Dates: start: 20020301
  3. NEBIVOLOL HCL [Suspect]
     Indication: HYPERTENSION
     Dosage: 5 MG;PO;QD
     Route: 048
     Dates: start: 20040413
  4. ISOSORBIDE DINITRATE [Suspect]
     Indication: ANGINA PECTORIS
     Dosage: 120 MG;QD PO
     Route: 048
     Dates: start: 20050211
  5. PIOGLITAZONE HYDROCHLORIDE [Suspect]
     Indication: DIABETES MELLITUS
     Dosage: 30 MG;QD PO
     Route: 048
     Dates: start: 20081104
  6. ATORVASTATIN CALCIUM [Concomitant]

REACTIONS (1)
  - LOSS OF CONSCIOUSNESS [None]
